FAERS Safety Report 15367578 (Version 2)
Quarter: 2018Q4

REPORT INFORMATION
  Report Type: Spontaneous
  Country: US (occurrence: US)
  Receive Date: 20180910
  Receipt Date: 20181010
  Transmission Date: 20190204
  Serious: No
  Sender: FDA-Public Use
  Company Number: US-B.I. PHARMACEUTICALS,INC./RIDGEFIELD-2018-BI-044838

PATIENT
  Sex: Male

DRUGS (1)
  1. SPIRIVA [Suspect]
     Active Substance: TIOTROPIUM BROMIDE MONOHYDRATE
     Indication: CHRONIC OBSTRUCTIVE PULMONARY DISEASE
     Dosage: ONE CAPSULE PER DAY; 18 MCG  ADMINI CORRECT  NO ?ACTION(S) TAKEN WITH PRODUCT: DOSE NOT CHANGED
     Route: 055

REACTIONS (2)
  - Extra dose administered [Unknown]
  - Product quality issue [Unknown]

NARRATIVE: CASE EVENT DATE: 201809
